FAERS Safety Report 25454858 (Version 1)
Quarter: 2025Q2

REPORT INFORMATION
  Report Type: Report from Study
  Country: US (occurrence: US)
  Receive Date: 20250619
  Receipt Date: 20250619
  Transmission Date: 20250716
  Serious: Yes (Death, Other)
  Sender: TAKEDA
  Company Number: US-TAKEDA-2024TUS046357

PATIENT
  Age: 70 Year
  Sex: Female

DRUGS (11)
  1. FRUQUINTINIB [Suspect]
     Active Substance: FRUQUINTINIB
     Indication: Rectal cancer
  2. FRUQUINTINIB [Suspect]
     Active Substance: FRUQUINTINIB
     Dates: start: 20240313, end: 20240803
  3. FRUQUINTINIB [Suspect]
     Active Substance: FRUQUINTINIB
  4. ALBUTEROL [Concomitant]
     Active Substance: ALBUTEROL
  5. BENZONATATE [Concomitant]
     Active Substance: BENZONATATE
  6. GABAPENTIN [Concomitant]
     Active Substance: GABAPENTIN
  7. LOPERAMIDE [Concomitant]
     Active Substance: LOPERAMIDE
  8. LORAZEPAM [Concomitant]
     Active Substance: LORAZEPAM
  9. METOPROLOL [Concomitant]
     Active Substance: METOPROLOL
  10. ONDANSETRON [Concomitant]
     Active Substance: ONDANSETRON
  11. TRELEGY ELLIPTA [Concomitant]
     Active Substance: FLUTICASONE FUROATE\UMECLIDINIUM BROMIDE\VILANTEROL TRIFENATATE

REACTIONS (5)
  - Death [Fatal]
  - Nausea [Unknown]
  - Feeling abnormal [Not Recovered/Not Resolved]
  - Fatigue [Not Recovered/Not Resolved]
  - Product use issue [Not Recovered/Not Resolved]

NARRATIVE: CASE EVENT DATE: 20240803
